FAERS Safety Report 17279025 (Version 1)
Quarter: 2020Q1

REPORT INFORMATION
  Report Type: Spontaneous
  Country: TR (occurrence: TR)
  Receive Date: 20200116
  Receipt Date: 20200116
  Transmission Date: 20200409
  Serious: Yes (Other)
  Sender: FDA-Public Use
  Company Number: NVSC2020TR006472

PATIENT
  Age: 73 Year
  Sex: Male

DRUGS (2)
  1. ZOMETA [Suspect]
     Active Substance: ZOLEDRONIC ACID
     Indication: PRODUCT USED FOR UNKNOWN INDICATION
     Dosage: UNK
     Route: 065
     Dates: start: 20181128
  2. INTERFERON ALFA 2B [Concomitant]
     Active Substance: INTERFERON ALFA-2B
     Indication: PRODUCT USED FOR UNKNOWN INDICATION
     Dosage: UNK
     Route: 065
     Dates: start: 20181128

REACTIONS (11)
  - Lymphadenopathy [Unknown]
  - Fatigue [Unknown]
  - Spondylolisthesis [Unknown]
  - Hepatic lesion [Unknown]
  - Pyrexia [Unknown]
  - Metastases to lymph nodes [Unknown]
  - Arteriosclerosis [Unknown]
  - Bone disorder [Unknown]
  - Disease progression [Unknown]
  - Asthenia [Unknown]
  - Drug ineffective [Unknown]
